FAERS Safety Report 11801476 (Version 1)
Quarter: 2015Q4

REPORT INFORMATION
  Report Type: Spontaneous
  Country: US (occurrence: US)
  Receive Date: 20151204
  Receipt Date: 20151204
  Transmission Date: 20160305
  Serious: No
  Sender: FDA-Public Use
  Company Number: US-WARNER CHILCOTT, LLC-1045046

PATIENT
  Sex: Female

DRUGS (1)
  1. LO LOESTRIN FE [Suspect]
     Active Substance: ETHINYL ESTRADIOL\NORETHINDRONE ACETATE
     Indication: CONTRACEPTION
     Route: 048

REACTIONS (7)
  - Nausea [Unknown]
  - Dysmenorrhoea [Unknown]
  - Therapeutic response unexpected [Unknown]
  - Product use issue [Unknown]
  - Headache [Unknown]
  - Amenorrhoea [Unknown]
  - Hypomenorrhoea [Unknown]
